APPROVED DRUG PRODUCT: METHADONE HYDROCHLORIDE
Active Ingredient: METHADONE HYDROCHLORIDE
Strength: 10MG/ML
Dosage Form/Route: CONCENTRATE;ORAL
Application: A212094 | Product #001
Applicant: LANNETT CO INC
Approved: Mar 3, 2021 | RLD: No | RS: No | Type: DISCN